FAERS Safety Report 13163467 (Version 1)
Quarter: 2017Q1

REPORT INFORMATION
  Report Type: Spontaneous
  Country: US (occurrence: US)
  Receive Date: 20170125
  Receipt Date: 20170125
  Transmission Date: 20170428
  Serious: Yes (Hospitalization)
  Sender: FDA-Public Use
  Company Number: None

PATIENT
  Age: 70 Year
  Sex: Male
  Weight: 105.5 kg

DRUGS (1)
  1. WARFARIN [Suspect]
     Active Substance: WARFARIN
     Indication: DEEP VEIN THROMBOSIS
     Dosage: MG PO
     Route: 048

REACTIONS (5)
  - Rectal haemorrhage [None]
  - Gastrointestinal haemorrhage [None]
  - International normalised ratio increased [None]
  - Haemoglobin decreased [None]
  - Hepatic cirrhosis [None]

NARRATIVE: CASE EVENT DATE: 20160930
